FAERS Safety Report 14602230 (Version 1)
Quarter: 2018Q1

REPORT INFORMATION
  Report Type: Spontaneous
  Country: US (occurrence: US)
  Receive Date: 20180306
  Receipt Date: 20180306
  Transmission Date: 20180509
  Serious: Yes (Death, Hospitalization, Other)
  Sender: FDA-Public Use
  Company Number: US-AUROBINDO-AUR-APL-2018-010090

PATIENT

DRUGS (1)
  1. PREDNISONE. [Suspect]
     Active Substance: PREDNISONE
     Indication: HEPATITIS C
     Dosage: 25 MG, DAILY

REACTIONS (14)
  - Sepsis [Unknown]
  - Ascites [Unknown]
  - Hypoxia [Unknown]
  - Hepatic encephalopathy [Unknown]
  - Azotaemia [Unknown]
  - Acute hepatic failure [Fatal]
  - Renal failure [Unknown]
  - Fatigue [Unknown]
  - Hepatitis cholestatic [Unknown]
  - Hypotension [Unknown]
  - Diarrhoea [Unknown]
  - Jaundice [Unknown]
  - Encephalopathy [Unknown]
  - Anion gap [Unknown]
